FAERS Safety Report 17242454 (Version 1)
Quarter: 2020Q1

REPORT INFORMATION
  Report Type: Spontaneous
  Country: US (occurrence: US)
  Receive Date: 20200106
  Receipt Date: 20200106
  Transmission Date: 20200409
  Serious: Yes (Disabling)
  Sender: FDA-Public Use
  Company Number: None

PATIENT
  Age: 88 Year
  Sex: Female
  Weight: 62.1 kg

DRUGS (7)
  1. VITAMIN B12 [Concomitant]
     Active Substance: CYANOCOBALAMIN
  2. MELOXICAM. [Concomitant]
     Active Substance: MELOXICAM
  3. OCUVITE [Concomitant]
     Active Substance: VITAMINS
  4. PROLIA [Suspect]
     Active Substance: DENOSUMAB
     Indication: OSTEOPOROSIS
     Dosage: ?          OTHER FREQUENCY:EVERY 6 MONTHS;?
     Route: 058
     Dates: start: 20190416, end: 20191115
  5. ESCITALOPRAM [Concomitant]
     Active Substance: ESCITALOPRAM OXALATE
  6. CALCIUM [Concomitant]
     Active Substance: CALCIUM
  7. ASPIRIN 81 MG [Concomitant]
     Active Substance: ASPIRIN

REACTIONS (7)
  - Tooth infection [None]
  - Dental caries [None]
  - Device related infection [None]
  - Urinary tract infection [None]
  - Myalgia [None]
  - Cellulitis [None]
  - Osteonecrosis of jaw [None]

NARRATIVE: CASE EVENT DATE: 20190715
